FAERS Safety Report 14022013 (Version 1)
Quarter: 2017Q3

REPORT INFORMATION
  Report Type: Spontaneous
  Country: JP (occurrence: JP)
  Receive Date: 20170928
  Receipt Date: 20170928
  Transmission Date: 20171128
  Serious: Yes (Death, Hospitalization, Other)
  Sender: FDA-Public Use
  Company Number: JP-TEVA-201709_00000678

PATIENT
  Age: 69 Year
  Sex: Female

DRUGS (9)
  1. TOCILIZUMAB 162 MG [Suspect]
     Active Substance: TOCILIZUMAB
     Dosage: SUBCUTANEOUS AUTOINJECTOR
     Route: 050
  2. CALCIUM POLYSTYRENE SULFONATE (20%) 25 G [Suspect]
     Active Substance: CALCIUM POLYSTYRENE SULFONATE
     Indication: PRODUCT USED FOR UNKNOWN INDICATION
     Route: 048
  3. LANSOPRAZOLE. [Suspect]
     Active Substance: LANSOPRAZOLE
     Indication: PRODUCT USED FOR UNKNOWN INDICATION
     Route: 048
     Dates: start: 201311, end: 201501
  4. PREDNISOLONE TABLETS 5MG AND 1MG [Suspect]
     Active Substance: PREDNISOLONE
     Route: 048
  5. METHOTREXATE 2 MG [Suspect]
     Active Substance: METHOTREXATE
     Indication: PRODUCT USED FOR UNKNOWN INDICATION
     Route: 048
  6. DICLOFENAC SODIUM 25 MG AND 12.5 MG [Suspect]
     Active Substance: DICLOFENAC SODIUM
     Indication: PRODUCT USED FOR UNKNOWN INDICATION
     Route: 054
  7. PREDNISOLONE TABLETS 5MG AND 1MG [Suspect]
     Active Substance: PREDNISOLONE
     Indication: PRODUCT USED FOR UNKNOWN INDICATION
     Dosage: 5MG
     Route: 048
     Dates: start: 201411, end: 201501
  8. DICLOFENAC SODIUM 25 MG AND 12.5 MG [Suspect]
     Active Substance: DICLOFENAC SODIUM
     Route: 054
  9. PARACETAMOL, TRAMADOL HYDROCHLORIDE [Suspect]
     Active Substance: ACETAMINOPHEN\TRAMADOL HYDROCHLORIDE
     Indication: PRODUCT USED FOR UNKNOWN INDICATION
     Route: 048

REACTIONS (3)
  - Large intestine perforation [Fatal]
  - Interstitial lung disease [Fatal]
  - Sepsis [Fatal]
